FAERS Safety Report 5142293-1 (Version None)
Quarter: 2006Q4

REPORT INFORMATION
  Report Type: 
  Country: None (occurrence: None)
  Receive Date: 20061027
  Receipt Date: 20061009
  Transmission Date: 20070319
  Serious: Yes (Other)
  Sender: FDA-Public Use
  Company Number: CIO06014220

PATIENT
  Age: 72 Year
  Sex: Female
  Weight: 86.2 kg

DRUGS (2)
  1. CREST PRO-HEALTH TOOTHPASTE, CLEAN CINNAMON FLAVOR (SODIUM POLYPHOSPHA [Suspect]
     Dosage: 1 APPLIC, 2/DAY FOR 3 DAYS, INTRAORAL
     Route: 048
     Dates: start: 20061004, end: 20061006
  2. AZMACORT [Concomitant]

REACTIONS (5)
  - DYSPHAGIA [None]
  - DYSPNOEA [None]
  - HYPERSENSITIVITY [None]
  - PARAESTHESIA ORAL [None]
  - SWOLLEN TONGUE [None]
